FAERS Safety Report 5473947-5 (Version None)
Quarter: 2007Q4

REPORT INFORMATION
  Report Type: 
  Country: None (occurrence: None)
  Receive Date: 20071001
  Receipt Date: 20070903
  Transmission Date: 20080405
  Serious: Yes (Hospitalization)
  Sender: FDA-Public Use
  Company Number: DE-PFIZER INC-2007080086

PATIENT
  Age: 60 Year
  Sex: Female

DRUGS (7)
  1. IRINOTECAN HCL [Suspect]
     Indication: OESOPHAGEAL SQUAMOUS CELL CARCINOMA
     Route: 042
  2. FOLINIC ACID [Suspect]
     Indication: OESOPHAGEAL SQUAMOUS CELL CARCINOMA
     Route: 042
  3. FOLINIC ACID [Suspect]
     Route: 042
  4. FLUOROURACIL [Suspect]
     Indication: OESOPHAGEAL SQUAMOUS CELL CARCINOMA
     Route: 042
  5. FLUOROURACIL [Suspect]
     Route: 042
  6. CISPLATIN [Suspect]
     Indication: OESOPHAGEAL SQUAMOUS CELL CARCINOMA
     Route: 042
  7. CISPLATIN [Suspect]
     Route: 042

REACTIONS (3)
  - DYSPHAGIA [None]
  - VOMITING [None]
  - WEIGHT DECREASED [None]
